FAERS Safety Report 14240205 (Version 1)
Quarter: 2017Q4

REPORT INFORMATION
  Report Type: Spontaneous
  Country: US (occurrence: US)
  Receive Date: 20171129
  Receipt Date: 20171129
  Transmission Date: 20180321
  Serious: Yes (Other)
  Sender: FDA-Public Use
  Company Number: None

PATIENT
  Age: 50 Year
  Sex: Female
  Weight: 90 kg

DRUGS (6)
  1. DOTERRA BONE NUTRIENT [Concomitant]
  2. TRIAMTERENE HCTZ [Concomitant]
     Active Substance: HYDROCHLOROTHIAZIDE\TRIAMTERENE
  3. LISINOPRIL. [Concomitant]
     Active Substance: LISINOPRIL
  4. DOTERRA DDR PRIME [Concomitant]
  5. DOTERRA^S LIFE LONG VITALITY PACK (XEO MEGA, ALPHA CRS+, MICROPLEX VMZ) [Concomitant]
  6. PHENTERMINE HCL 37.5 MG TAB [Suspect]
     Active Substance: PHENTERMINE HYDROCHLORIDE
     Indication: APPETITE DISORDER
     Dosage: ?          QUANTITY:1 TABLET(S);?
     Route: 048
     Dates: start: 20171114, end: 20171122

REACTIONS (5)
  - Alopecia [None]
  - Impaired work ability [None]
  - Rash [None]
  - Headache [None]
  - Urticaria [None]

NARRATIVE: CASE EVENT DATE: 20171121
